FAERS Safety Report 15326692 (Version 2)
Quarter: 2019Q2

REPORT INFORMATION
  Report Type: Report from Study
  Country: US (occurrence: US)
  Receive Date: 20180828
  Receipt Date: 20190509
  Transmission Date: 20190711
  Serious: Yes (Other)
  Sender: FDA-Public Use
  Company Number: US-SA-2017SA150602

PATIENT
  Age: 36 Year
  Sex: Female

DRUGS (12)
  1. BACLOFEN. [Concomitant]
     Active Substance: BACLOFEN
     Dosage: 10 MG,UNK
  2. ALEMTUZUMAB [Suspect]
     Active Substance: ALEMTUZUMAB
     Indication: MULTIPLE SCLEROSIS
     Dosage: 12 MG,QD
     Route: 041
     Dates: start: 20170712, end: 20170714
  3. GABAPENTIN. [Concomitant]
     Active Substance: GABAPENTIN
     Dosage: 600 MG,TID
  4. VITAMIN D3 [Concomitant]
     Active Substance: CHOLECALCIFEROL
     Dosage: 5000 DF,QD
  5. IBUPROFEN. [Concomitant]
     Active Substance: IBUPROFEN
     Dosage: 2 DF,PRN
  6. VITAMIN A [RETINOL] [Concomitant]
     Active Substance: RETINOL
     Dosage: UNK UNK,UNK
     Dates: start: 201712
  7. PARACETAMOL [Concomitant]
     Active Substance: ACETAMINOPHEN
     Dosage: 2 DF,PRN
  8. OMEPRAZOLE. [Concomitant]
     Active Substance: OMEPRAZOLE
     Dosage: 40 MG,PRN
  9. ALEMTUZUMAB [Suspect]
     Active Substance: ALEMTUZUMAB
     Dosage: 12 MG,QD
     Route: 041
     Dates: start: 20160627, end: 20160701
  10. ACICLOVIR [Concomitant]
     Active Substance: ACYCLOVIR
     Dosage: 400 MG,TID
     Dates: start: 201607
  11. VITAMIN B6 [Concomitant]
     Active Substance: PYRIDOXINE HYDROCHLORIDE
     Dosage: UNK UNK,QD
     Dates: start: 201712
  12. CYANOCOBALAMIN. [Concomitant]
     Active Substance: CYANOCOBALAMIN
     Dosage: UNK UNK,UNK
     Dates: start: 201712

REACTIONS (13)
  - White blood cells urine positive [Not Recovered/Not Resolved]
  - Feeling hot [Not Recovered/Not Resolved]
  - Hypovitaminosis [Unknown]
  - Bronchoscopy [Unknown]
  - Pneumonia [Unknown]
  - Menstrual disorder [Not Recovered/Not Resolved]
  - Headache [Unknown]
  - Bronchiectasis [Unknown]
  - Basal cell carcinoma [Not Recovered/Not Resolved]
  - Sinusitis [Recovered/Resolved]
  - Blood immunoglobulin G decreased [Unknown]
  - Vaginal haemorrhage [Unknown]
  - Upper respiratory tract infection [Recovered/Resolved]

NARRATIVE: CASE EVENT DATE: 20170712
